FAERS Safety Report 22006359 (Version 1)
Quarter: 2023Q1

REPORT INFORMATION
  Report Type: Spontaneous
  Country: US (occurrence: US)
  Receive Date: 20230217
  Receipt Date: 20230217
  Transmission Date: 20230417
  Serious: Yes (Other)
  Sender: FDA-Public Use
  Company Number: US-FreseniusKabi-FK202301762

PATIENT
  Sex: Male

DRUGS (5)
  1. VINBLASTINE [Suspect]
     Active Substance: VINBLASTINE
     Indication: Hodgkin^s disease
     Dosage: COULDN^T TOLERATE MORE THAN 3 CYCLES OF BV+AVD
  2. DACARBAZINE [Suspect]
     Active Substance: DACARBAZINE
     Indication: Hodgkin^s disease
     Dosage: COULDN^T TOLERATE MORE THAN 3 CYCLES OF BV+AVD
  3. ADRIAMYCIN [Suspect]
     Active Substance: DOXORUBICIN HYDROCHLORIDE
     Indication: Hodgkin^s disease
     Dosage: COULDN^T TOLERATE MORE THAN 3 CYCLES OF BV+AVD
  4. BRENTUXIMAB VEDOTIN [Suspect]
     Active Substance: BRENTUXIMAB VEDOTIN
     Indication: Hodgkin^s disease
     Dosage: COULDN^T TOLERATE MORE THAN 3 CYCLES OF BV+AVD
  5. TUKYSA [Concomitant]
     Active Substance: TUCATINIB
     Indication: Hodgkin^s disease

REACTIONS (3)
  - Osteomyelitis [Unknown]
  - Neuropathy peripheral [Unknown]
  - Rash [Unknown]
